FAERS Safety Report 18164679 (Version 1)
Quarter: 2020Q3

REPORT INFORMATION
  Report Type: Report from Study
  Country: US (occurrence: US)
  Receive Date: 20200818
  Receipt Date: 20200818
  Transmission Date: 20201103
  Serious: No
  Sender: FDA-Public Use
  Company Number: US-AGIOS-2008US02087

PATIENT

DRUGS (1)
  1. TIBSOVO [Suspect]
     Active Substance: IVOSIDENIB
     Indication: GENE MUTATION
     Dosage: 500 MILLIGRAM
     Route: 048
     Dates: end: 20200811

REACTIONS (1)
  - Drug ineffective [Unknown]
